FAERS Safety Report 20930940 (Version 1)
Quarter: 2022Q2

REPORT INFORMATION
  Report Type: Spontaneous
  Country: US (occurrence: US)
  Receive Date: 20220608
  Receipt Date: 20220608
  Transmission Date: 20220721
  Serious: No
  Sender: FDA-Public Use
  Company Number: US-CADILA HEALTHCARE LIMITED-US-ZYDUS-077800

PATIENT

DRUGS (2)
  1. MESALAMINE [Suspect]
     Active Substance: MESALAMINE
     Indication: Colitis ulcerative
     Dosage: , QD
     Route: 054
     Dates: start: 202204
  2. CANASA [Suspect]
     Active Substance: MESALAMINE
     Indication: Colitis ulcerative
     Dosage: UNK, UNK
     Route: 065

REACTIONS (2)
  - Hypertension [Recovered/Resolved]
  - Lip swelling [Recovering/Resolving]

NARRATIVE: CASE EVENT DATE: 20220401
